FAERS Safety Report 18081767 (Version 3)
Quarter: 2020Q3

REPORT INFORMATION
  Report Type: Other
  Country: AU (occurrence: AU)
  Receive Date: 20200728
  Receipt Date: 20200909
  Transmission Date: 20201103
  Serious: Yes (Life-Threatening, Other)
  Sender: FDA-Public Use
  Company Number: AU-ROCHE-2646720

PATIENT
  Age: 66 Year
  Sex: Male

DRUGS (2)
  1. LUCENTIS [Suspect]
     Active Substance: RANIBIZUMAB
     Indication: RETINOPATHY OF PREMATURITY
     Dosage: 0.2 MG, ONCE/SINGLE (REPORTED FORMULATION: SOLUTION)
     Route: 050
     Dates: start: 20200715
  2. MORPHINE [Concomitant]
     Active Substance: MORPHINE
     Indication: PRODUCT USED FOR UNKNOWN INDICATION
     Dosage: 50 OT (50 MCG/KG)
     Route: 048

REACTIONS (7)
  - Pulmonary hypertension [Recovered/Resolved]
  - C-reactive protein increased [Unknown]
  - Petechiae [Recovering/Resolving]
  - Hypercapnia [Recovered/Resolved]
  - Hypoxia [Recovered/Resolved]
  - Bradypnoea [Recovered/Resolved]
  - Sedation [Unknown]

NARRATIVE: CASE EVENT DATE: 20200715
